FAERS Safety Report 15943241 (Version 1)
Quarter: 2019Q1

REPORT INFORMATION
  Report Type: Spontaneous
  Country: ES (occurrence: ES)
  Receive Date: 20190210
  Receipt Date: 20190210
  Transmission Date: 20190417
  Serious: Yes (Death)
  Sender: FDA-Public Use
  Company Number: ES-CELLTRION INC.-2019ES018493

PATIENT

DRUGS (1)
  1. RITUXIMAB (UNKNOWN) [Suspect]
     Active Substance: RITUXIMAB
     Indication: SYSTEMIC LUPUS ERYTHEMATOSUS
     Dosage: 1 G, EVERY 6 MONTHS (DAYS 1 AND 15 PER PROTOCOL)
     Route: 042

REACTIONS (3)
  - Intentional product use issue [Fatal]
  - Off label use [Fatal]
  - Sepsis [Fatal]
